FAERS Safety Report 12686900 (Version 1)
Quarter: 2016Q3

REPORT INFORMATION
  Report Type: Spontaneous
  Country: US (occurrence: US)
  Receive Date: 20160825
  Receipt Date: 20160825
  Transmission Date: 20161109
  Serious: No
  Sender: FDA-Public Use
  Company Number: US-JAZZ-2016-US-006839

PATIENT
  Sex: Female

DRUGS (23)
  1. IBUPROFEN. [Concomitant]
     Active Substance: IBUPROFEN
  2. LIDOCAINE. [Concomitant]
     Active Substance: LIDOCAINE
  3. XYREM [Suspect]
     Active Substance: SODIUM OXYBATE
     Dosage: 3.5 G, BID
     Route: 048
     Dates: start: 200809, end: 2008
  4. HYDROXYCHLOROQUINE [Concomitant]
     Active Substance: HYDROXYCHLOROQUINE
  5. CYCLOBENZAPRINE [Concomitant]
     Active Substance: CYCLOBENZAPRINE
  6. FLONASE [Concomitant]
     Active Substance: FLUTICASONE PROPIONATE
  7. LUNESTA [Concomitant]
     Active Substance: ESZOPICLONE
  8. NORCO [Concomitant]
     Active Substance: ACETAMINOPHEN\HYDROCODONE BITARTRATE
  9. OMEPRAZOLE. [Concomitant]
     Active Substance: OMEPRAZOLE
  10. SINGULAIR [Concomitant]
     Active Substance: MONTELUKAST SODIUM
  11. ZALEPLON. [Concomitant]
     Active Substance: ZALEPLON
  12. FERROUS GLUCONATE [Concomitant]
     Active Substance: FERROUS GLUCONATE
  13. VITAMIN D [Concomitant]
     Active Substance: CHOLECALCIFEROL
  14. DICYCLOMINE [Concomitant]
     Active Substance: DICYCLOMINE HYDROCHLORIDE
  15. XYREM [Suspect]
     Active Substance: SODIUM OXYBATE
     Indication: NARCOLEPSY
     Dosage: 3 G, BID
     Route: 048
     Dates: start: 200802, end: 200809
  16. MELOXICAM. [Concomitant]
     Active Substance: MELOXICAM
  17. BENADRYL ALLERGY [Concomitant]
     Active Substance: DIPHENHYDRAMINE HYDROCHLORIDE
  18. PROVIGIL [Concomitant]
     Active Substance: MODAFINIL
  19. TRAZODONE HYDROCHLORIDE. [Concomitant]
     Active Substance: TRAZODONE HYDROCHLORIDE
  20. DETROL [Concomitant]
     Active Substance: TOLTERODINE TARTRATE
  21. ZENZEDI [Concomitant]
     Active Substance: DEXTROAMPHETAMINE SULFATE
  22. XYREM [Suspect]
     Active Substance: SODIUM OXYBATE
     Dosage: 3.5 G, BID
     Route: 048
     Dates: start: 201603
  23. TEMAZEPAM. [Concomitant]
     Active Substance: TEMAZEPAM

REACTIONS (1)
  - Vitamin D decreased [Not Recovered/Not Resolved]
